FAERS Safety Report 8820388 (Version 3)
Quarter: 2012Q4

REPORT INFORMATION
  Report Type: 
  Country: ES (occurrence: ES)
  Receive Date: 20121002
  Receipt Date: 20121017
  Transmission Date: 20130627
  Serious: Yes (Other)
  Sender: FDA-Public Use
  Company Number: ES-UCBSA-067684

PATIENT
  Age: 40 Year
  Sex: Female

DRUGS (1)
  1. CIMZIA [Suspect]
     Indication: RHEUMATOID ARTHRITIS
     Dosage: 45289 (IN JANUARY AND FEBRUARY), 48136(IN MARCH AND EARLY DAYS OF APRIL)
     Route: 058
     Dates: start: 20120107

REACTIONS (2)
  - Herpes simplex [Unknown]
  - Candidiasis [Unknown]
